FAERS Safety Report 13156106 (Version 2)
Quarter: 2020Q2

REPORT INFORMATION
  Report Type: Spontaneous
  Country: BR (occurrence: BR)
  Receive Date: 20170126
  Receipt Date: 20200513
  Transmission Date: 20200713
  Serious: Yes (Hospitalization, Other)
  Sender: FDA-Public Use
  Company Number: BR-PFIZER INC-2017033217

PATIENT
  Age: 72 Year
  Sex: Male
  Weight: 79 kg

DRUGS (7)
  1. ALDACTONE [Concomitant]
     Active Substance: SPIRONOLACTONE
     Indication: CARDIAC DISORDER
     Dosage: 25 MG, 1X/DAY
     Route: 048
     Dates: start: 1995
  2. LIPITOR [Suspect]
     Active Substance: ATORVASTATIN CALCIUM
     Dosage: 2 DF, 2X/DAY (TWO TABLETS, TWICE A DAY)
     Route: 048
  3. RENITEC /00574902/ [Concomitant]
     Active Substance: ENALAPRIL MALEATE
     Indication: HYPERTENSION
     Dosage: 1 DF, DAILY
     Route: 048
     Dates: start: 1995
  4. LASIX [Concomitant]
     Active Substance: FUROSEMIDE
     Dosage: UNK
  5. LIPITOR [Suspect]
     Active Substance: ATORVASTATIN CALCIUM
     Indication: BLOOD CHOLESTEROL
     Dosage: 40 MG, 1X/DAY
     Route: 048
  6. CARDILOL /00030002/ [Concomitant]
     Indication: CARDIAC DISORDER
     Dosage: 2 DF, DAILY
     Route: 048
     Dates: start: 1995
  7. ALDACTONE [Concomitant]
     Active Substance: SPIRONOLACTONE
     Dosage: 2 DF, 2X/DAY (TWO TABLETS TWICE A DAY)
     Route: 048

REACTIONS (7)
  - Coma [Unknown]
  - Product use issue [Unknown]
  - American trypanosomiasis [Unknown]
  - Intentional product misuse [Unknown]
  - Off label use [Unknown]
  - Cardiac disorder [Unknown]
  - Lung disorder [Unknown]

NARRATIVE: CASE EVENT DATE: 20110313
